FAERS Safety Report 18831800 (Version 1)
Quarter: 2021Q1

REPORT INFORMATION
  Report Type: Spontaneous
  Country: US (occurrence: US)
  Receive Date: 20210202
  Receipt Date: 20210202
  Transmission Date: 20210419
  Serious: Yes (Hospitalization)
  Sender: FDA-Public Use
  Company Number: None

PATIENT
  Age: 73 Year
  Sex: Male

DRUGS (1)
  1. ACETAMINOPHEN/OXYCODONE (OXYCODONE HCL 5MG/ACETAMINOPHEN 325MG CAP) [Suspect]
     Active Substance: ACETAMINOPHEN\OXYCODONE HYDROCHLORIDE
     Indication: KIDNEY CONTUSION
     Dates: start: 20200501, end: 20200513

REACTIONS (3)
  - Fall [None]
  - Eosinophilic gastritis [None]
  - Oesophagitis [None]

NARRATIVE: CASE EVENT DATE: 20200515
